FAERS Safety Report 11568956 (Version 3)
Quarter: 2016Q3

REPORT INFORMATION
  Report Type: Report from Study
  Country: US (occurrence: US)
  Receive Date: 20150929
  Receipt Date: 20160817
  Transmission Date: 20161109
  Serious: Yes (Hospitalization, Other)
  Sender: FDA-Public Use
  Company Number: US-009507513-1509USA011692

PATIENT
  Age: 14 Year
  Sex: Female
  Weight: 53 kg

DRUGS (14)
  1. DEXAMETHASONE. [Suspect]
     Active Substance: DEXAMETHASONE
     Indication: ANAPLASTIC LARGE CELL LYMPHOMA T- AND NULL-CELL TYPES
     Dosage: 5 MG/M2, QD ON DAYS 1-2(PROPHASE)   IN A CYCLE OF 5 DAYS
     Route: 048
     Dates: start: 20141007
  2. DEXAMETHASONE. [Suspect]
     Active Substance: DEXAMETHASONE
     Dosage: 5 MG/M2, BID ON DAYS 1-5 IN A CYCLE OF 21 DAYS
     Route: 048
     Dates: end: 20150201
  3. METHOTREXATE SODIUM. [Suspect]
     Active Substance: METHOTREXATE SODIUM
     Indication: ANAPLASTIC LARGE CELL LYMPHOMA T- AND NULL-CELL TYPES
     Dosage: 7.5-12 MG, ON DAY 1(AGE BASED DOSING) ON PROPHASE IN A CYCLE OF 5 DAYS
     Route: 037
     Dates: start: 20141007
  4. DEXAMETHASONE. [Suspect]
     Active Substance: DEXAMETHASONE
     Dosage: 5 MG/M2 BID ON DAYS 3-5  IN A CYCLE OF 5 DAYS (PROPHASE)
     Route: 048
  5. METHOTREXATE SODIUM. [Suspect]
     Active Substance: METHOTREXATE SODIUM
     Dosage: 3000 MG/M2 IV OVER 3 HOURS ON DAY 1 IN A CYCLE OF 21 DAYS
     Route: 042
     Dates: end: 20150128
  6. ETOPOSIDE. [Suspect]
     Active Substance: ETOPOSIDE
     Indication: ANAPLASTIC LARGE CELL LYMPHOMA T- AND NULL-CELL TYPES
     Dosage: 100 MG/M2,OVER 2 HOURS ON DAYS 4 AND 5 IN COURSE A IN A CYCLE OF 21 DAYS, IN CYCLES 1, 3 AND 5.
     Route: 042
     Dates: end: 20150112
  7. CYTARABINE. [Concomitant]
     Active Substance: CYTARABINE
     Dosage: 150 MG/M2, OVER 1-30 MINS Q12 HOURS ON DAYS 4 AND 5 IN A CYCLE OF 21 DAYS (TOTAL 4 DOSES)
     Route: 042
     Dates: end: 20150112
  8. DOXORUBICIN HYDROCHLORIDE. [Suspect]
     Active Substance: DOXORUBICIN HYDROCHLORIDE
     Indication: ANAPLASTIC LARGE CELL LYMPHOMA T- AND NULL-CELL TYPES
     Dosage: 25 MG/M2, OVER 1-15 MIN ON DAYS 4 AND 5 IN A CYCLE OF 21 DAYS, IN CYCLES 2, 4 AND 6.
     Route: 042
     Dates: end: 20150201
  9. CRIZOTINIB [Suspect]
     Active Substance: CRIZOTINIB
     Indication: ANAPLASTIC LARGE CELL LYMPHOMA T- AND NULL-CELL TYPES
     Dosage: 165 MG/M2, BID ON DAYS 1-21
     Route: 048
     Dates: start: 20141007, end: 20150211
  10. IFOSFAMIDE. [Concomitant]
     Active Substance: IFOSFAMIDE
     Indication: ANAPLASTIC LARGE CELL LYMPHOMA T- AND NULL-CELL TYPES
     Dosage: 800 MG/M2, OVER 60 MINS ON DAYS 1-5  IN A CYCLE OF 21 DAYS, IN CYCLES 1, 3 AND 5
     Route: 042
     Dates: start: 20141007, end: 20150111
  11. CYCLOPHOSPHAMIDE. [Suspect]
     Active Substance: CYCLOPHOSPHAMIDE
     Indication: ANAPLASTIC LARGE CELL LYMPHOMA T- AND NULL-CELL TYPES
     Dosage: 200 MG/M2, OVER 15-30 MINS ON DAYS 1 AND 2(PROPHASE)  IN A CYCLE OF 5 DAYS
     Route: 042
     Dates: start: 20141007
  12. CYTARABINE. [Concomitant]
     Active Substance: CYTARABINE
     Indication: ANAPLASTIC LARGE CELL LYMPHOMA T- AND NULL-CELL TYPES
     Dosage: 15-24MG, ON DAY 1 IN A CYCLE OF 5 DAYS (AGE BASED DOSING)
     Route: 037
     Dates: start: 20141004
  13. CYCLOPHOSPHAMIDE. [Suspect]
     Active Substance: CYCLOPHOSPHAMIDE
     Dosage: 200 MG/M2, OVER 15-30 MINS ON DAYS 1-5 IN A CYCLE OF 21 DAYS, IN CYCLES 2, 4 AND 6
     Route: 042
     Dates: end: 20150201
  14. HYDROCORTISONE. [Concomitant]
     Active Substance: HYDROCORTISONE
     Indication: ANAPLASTIC LARGE CELL LYMPHOMA T- AND NULL-CELL TYPES
     Dosage: 7.5-12 MG ON DAY 1 IN A CYCLE OF 5 DAYS(AGE BASED DOSING)
     Route: 037
     Dates: start: 20141007

REACTIONS (3)
  - Hypokalaemia [Not Recovered/Not Resolved]
  - Anaemia [Not Recovered/Not Resolved]
  - White blood cell count decreased [Recovered/Resolved]

NARRATIVE: CASE EVENT DATE: 20150211
